FAERS Safety Report 6609551-2 (Version None)
Quarter: 2010Q1

REPORT INFORMATION
  Report Type: 
  Country: None (occurrence: None)
  Receive Date: 20100302
  Receipt Date: 20100226
  Transmission Date: 20100710
  Serious: Yes (Life-Threatening)
  Sender: FDA-Public Use
  Company Number: FR-JNJFOC-20100210992

PATIENT
  Age: 26 Year
  Sex: Female

DRUGS (5)
  1. HALDOL [Suspect]
     Indication: AGITATION
     Route: 065
  2. CELOCURINE [Suspect]
     Indication: ENDOTRACHEAL INTUBATION
     Route: 042
  3. DIPRIVAN [Concomitant]
     Route: 065
  4. HYPNOVEL [Concomitant]
     Route: 065
  5. ZYVOXID [Concomitant]
     Indication: STAPHYLOCOCCAL INFECTION
     Route: 065

REACTIONS (2)
  - CARDIAC ARREST [None]
  - ELECTROCARDIOGRAM QT PROLONGED [None]
